FAERS Safety Report 9495567 (Version 2)
Quarter: 2014Q1

REPORT INFORMATION
  Report Type: Spontaneous
  Country: US (occurrence: US)
  Receive Date: 20130903
  Receipt Date: 20140318
  Transmission Date: 20141002
  Serious: Yes (Hospitalization, Other)
  Sender: FDA-Public Use
  Company Number: US-BAYER-2013-105537

PATIENT
  Age: 19 Year
  Sex: Female
  Weight: 89.8 kg

DRUGS (2)
  1. MIRENA [Suspect]
     Indication: CONTRACEPTION
     Dosage: 20 MCG/24HR, CONT
     Route: 015
     Dates: start: 20080425, end: 20090526
  2. MIRENA [Suspect]
     Indication: MENORRHAGIA

REACTIONS (8)
  - Uterine perforation [None]
  - Device dislocation [None]
  - Abdominal pain lower [None]
  - Medical device pain [None]
  - Injury [None]
  - Genital haemorrhage [None]
  - Peritoneal adhesions [None]
  - Infection [None]
